FAERS Safety Report 5425309-4 (Version None)
Quarter: 2007Q3

REPORT INFORMATION
  Report Type: 
  Country: None (occurrence: None)
  Receive Date: 20070824
  Receipt Date: 20061116
  Transmission Date: 20080115
  Serious: Yes (Other)
  Sender: FDA-Public Use
  Company Number: US-GENENTECH-232309

PATIENT
  Sex: Female

DRUGS (2)
  1. AVASTIN [Suspect]
     Indication: BREAST CANCER METASTATIC
     Dosage: 10 MG, UNK
     Route: 042
  2. XELODA [Concomitant]
     Indication: BREAST CANCER METASTATIC

REACTIONS (5)
  - ASCITES [None]
  - EPISTAXIS [None]
  - LACRIMATION INCREASED [None]
  - RETINAL TEAR [None]
  - VISUAL ACUITY REDUCED [None]
